FAERS Safety Report 5872648-9 (Version None)
Quarter: 2008Q3

REPORT INFORMATION
  Report Type: 
  Country: None (occurrence: None)
  Receive Date: 20080905
  Receipt Date: 20080813
  Transmission Date: 20090109
  Serious: Yes (Other)
  Sender: FDA-Public Use
  Company Number: US-JNJCH-2008021408

PATIENT
  Age: 20 Month
  Sex: Male
  Weight: 13.6 kg

DRUGS (2)
  1. BENADRYL ALLERGY QUICK DISSOLVE STRIPS [Suspect]
     Indication: HYPERSENSITIVITY
     Dosage: TEXT:1 STRIP EVERY 4 HOURS
     Route: 048
  2. BENADRYL ALLERGY CHILDREN'S PERFECT MEASURE [Suspect]
     Indication: HYPERSENSITIVITY
     Dosage: TEXT:1 SPOON EVERY 4 HOURS
     Route: 048

REACTIONS (3)
  - RASH [None]
  - URTICARIA [None]
  - WRONG DRUG ADMINISTERED [None]
